FAERS Safety Report 4422721-7 (Version None)
Quarter: 2004Q3

REPORT INFORMATION
  Report Type: 
  Country: None (occurrence: None)
  Receive Date: 20040713
  Receipt Date: 20030804
  Transmission Date: 20050211
  Serious: No
  Sender: FDA-Public Use
  Company Number: PHEH2003US06873

PATIENT
  Age: 72 Year
  Sex: Female

DRUGS (4)
  1. ELIDEL [Suspect]
     Indication: URTICARIA
     Dosage: BID, TOPICAL
     Route: 061
     Dates: start: 20030501
  2. TIAZAC [Concomitant]
  3. PAXIL [Concomitant]
  4. ASPIRIN [Concomitant]

REACTIONS (1)
  - EYE IRRITATION [None]
